FAERS Safety Report 14790320 (Version 5)
Quarter: 2019Q2

REPORT INFORMATION
  Report Type: Spontaneous
  Country: US (occurrence: US)
  Receive Date: 20180423
  Receipt Date: 20190426
  Transmission Date: 20190711
  Serious: Yes (Other)
  Sender: FDA-Public Use
  Company Number: US-ASTRAZENECA-2018SE48690

PATIENT
  Sex: Female
  Weight: 87.1 kg

DRUGS (32)
  1. NEXIUM [Suspect]
     Active Substance: ESOMEPRAZOLE MAGNESIUM
     Route: 048
     Dates: start: 2017
  2. NEXIUM [Suspect]
     Active Substance: ESOMEPRAZOLE MAGNESIUM
     Route: 048
     Dates: start: 2004, end: 2016
  3. DICLOFENAC [Concomitant]
     Active Substance: DICLOFENAC
  4. LEVOTHYROXINE. [Concomitant]
     Active Substance: LEVOTHYROXINE
  5. REPATHA [Concomitant]
     Active Substance: EVOLOCUMAB
  6. NEXIUM 24HR [Suspect]
     Active Substance: ESOMEPRAZOLE MAGNESIUM
     Route: 048
  7. METFORMIN [Concomitant]
     Active Substance: METFORMIN HYDROCHLORIDE
  8. GABAPENTIN. [Concomitant]
     Active Substance: GABAPENTIN
  9. NEXIUM [Suspect]
     Active Substance: ESOMEPRAZOLE MAGNESIUM
     Dosage: GENERIC
     Route: 048
     Dates: start: 2016, end: 2017
  10. PRILOSEC OTC [Suspect]
     Active Substance: OMEPRAZOLE MAGNESIUM
     Route: 048
  11. DULAGLUTIDE. [Concomitant]
     Active Substance: DULAGLUTIDE
  12. FUROSEMIDE. [Concomitant]
     Active Substance: FUROSEMIDE
  13. NITROSTAT [Concomitant]
     Active Substance: NITROGLYCERIN
  14. TRAZODONE [Concomitant]
     Active Substance: TRAZODONE HYDROCHLORIDE
  15. FUROSEMIDE. [Concomitant]
     Active Substance: FUROSEMIDE
  16. OXYCODONE [Concomitant]
     Active Substance: OXYCODONE
  17. PREVACID [Suspect]
     Active Substance: LANSOPRAZOLE
     Route: 048
  18. PREVACID 24 HR [Suspect]
     Active Substance: LANSOPRAZOLE
     Route: 048
  19. CLONIDINE. [Concomitant]
     Active Substance: CLONIDINE
  20. GABAPENTIN. [Concomitant]
     Active Substance: GABAPENTIN
  21. PAROXETINE. [Concomitant]
     Active Substance: PAROXETINE
  22. BETAMETHASONE+CLOTRIMAZOLE [Concomitant]
  23. VALSARTAN. [Concomitant]
     Active Substance: VALSARTAN
  24. NEXIUM [Suspect]
     Active Substance: ESOMEPRAZOLE MAGNESIUM
     Route: 048
  25. DEXILANT [Suspect]
     Active Substance: DEXLANSOPRAZOLE
     Route: 048
  26. PROTONIX [Suspect]
     Active Substance: PANTOPRAZOLE SODIUM
     Route: 065
  27. TOLTERODINE [Concomitant]
     Active Substance: TOLTERODINE
  28. LISINOPRIL. [Concomitant]
     Active Substance: LISINOPRIL
  29. PRILOSEC [Suspect]
     Active Substance: OMEPRAZOLE MAGNESIUM
     Route: 048
  30. DEXILANT [Suspect]
     Active Substance: DEXLANSOPRAZOLE
     Route: 048
     Dates: start: 2017
  31. BENADRYL [Concomitant]
     Active Substance: DIPHENHYDRAMINE HYDROCHLORIDE
  32. NOVOLOG [Concomitant]
     Active Substance: INSULIN ASPART

REACTIONS (5)
  - Rebound acid hypersecretion [Unknown]
  - Renal injury [Unknown]
  - Chronic kidney disease [Not Recovered/Not Resolved]
  - Renal haemangioma [Unknown]
  - Renal failure [Unknown]
